FAERS Safety Report 8361868-X (Version None)
Quarter: 2012Q2

REPORT INFORMATION
  Report Type: 
  Country: None (occurrence: None)
  Receive Date: 20120515
  Receipt Date: 20120501
  Transmission Date: 20120825
  Serious: No
  Sender: FDA-Public Use
  Company Number: US-ASTRAZENECA-2012SE28385

PATIENT
  Sex: Female

DRUGS (2)
  1. TOPROL-XL [Suspect]
  2. LISINOPRIL [Concomitant]

REACTIONS (3)
  - FATIGUE [None]
  - DRUG EFFECT DECREASED [None]
  - HYPERTENSION [None]
